FAERS Safety Report 13207223 (Version 1)
Quarter: 2017Q1

REPORT INFORMATION
  Report Type: Spontaneous
  Country: US (occurrence: US)
  Receive Date: 20170209
  Receipt Date: 20170209
  Transmission Date: 20170428
  Serious: No
  Sender: FDA-Public Use
  Company Number: US-SA-2016SA232258

PATIENT
  Sex: Male

DRUGS (10)
  1. NIASPAN [Concomitant]
     Active Substance: NIACIN
     Dosage: DOSE: 1000 ER
  2. ALIROCUMAB PREFILLED PEN [Concomitant]
     Active Substance: ALIROCUMAB
     Dates: start: 20160213
  3. CLOPIDOGREL [Concomitant]
     Active Substance: CLOPIDOGREL BISULFATE
  4. RANEXA [Concomitant]
     Active Substance: RANOLAZINE
     Dosage: 1000MG?500MG
  5. TAMSULOSIN [Concomitant]
     Active Substance: TAMSULOSIN
  6. ZETIA [Concomitant]
     Active Substance: EZETIMIBE
  7. PRALUENT [Suspect]
     Active Substance: ALIROCUMAB
     Route: 058
     Dates: start: 20160213
  8. AMLODIPINE [Concomitant]
     Active Substance: AMLODIPINE BESYLATE
  9. CARVEDILOL. [Concomitant]
     Active Substance: CARVEDILOL
  10. ISOSORBIDE MONONITRATE. [Concomitant]
     Active Substance: ISOSORBIDE MONONITRATE

REACTIONS (2)
  - Nasopharyngitis [Not Recovered/Not Resolved]
  - Rhinorrhoea [Not Recovered/Not Resolved]
